FAERS Safety Report 10286540 (Version 5)
Quarter: 2014Q4

REPORT INFORMATION
  Report Type: Spontaneous
  Country: JP (occurrence: JP)
  Receive Date: 20140709
  Receipt Date: 20141202
  Transmission Date: 20150528
  Serious: Yes (Hospitalization, Other)
  Sender: FDA-Public Use
  Company Number: JP-PFIZER INC-2014187272

PATIENT
  Age: 77 Year
  Sex: Female
  Weight: 36 kg

DRUGS (16)
  1. LYRICA [Suspect]
     Active Substance: PREGABALIN
     Indication: NEURALGIA
     Dosage: 75 MG, 2X/DAY
     Route: 048
     Dates: start: 20140622, end: 20140626
  2. LYRICA [Suspect]
     Active Substance: PREGABALIN
     Indication: SPINAL FRACTURE
     Dosage: 150 MG, DAILY
     Route: 048
     Dates: start: 20140627, end: 20140627
  3. LYRICA [Suspect]
     Active Substance: PREGABALIN
     Indication: THORACIC VERTEBRAL FRACTURE
     Dosage: 300 MG, DAILY
     Route: 048
     Dates: start: 20140628, end: 20140702
  4. VOLTAREN [Suspect]
     Active Substance: DICLOFENAC SODIUM
     Dosage: A FEW TIMES AS NEEDED
     Dates: start: 20140620
  5. CEFMETAZOLE [Suspect]
     Active Substance: CEFMETAZOLE
     Dosage: UNK
     Dates: start: 20140623, end: 20140625
  6. NEXIUM [Suspect]
     Active Substance: ESOMEPRAZOLE MAGNESIUM
     Dosage: 10 MG, DAILY
     Route: 048
     Dates: start: 20140620
  7. DAI-KENCHU-TO [Concomitant]
     Active Substance: MALTOSE
  8. ELASPOL [Concomitant]
     Active Substance: SIVELESTAT SODIUM
  9. LYRICA [Suspect]
     Active Substance: PREGABALIN
     Dosage: 150 MG, DAILY
     Route: 048
     Dates: start: 20140703, end: 20140704
  10. LECICARBON [Suspect]
     Active Substance: SODIUM BICARBONATE\SODIUM PHOSPHATE, MONOBASIC
     Dosage: A FEW TIMES AS NEEDED
     Dates: start: 20140620
  11. LASIX [Concomitant]
     Active Substance: FUROSEMIDE
  12. MYOCORD [Concomitant]
  13. REBAMIPIDE [Concomitant]
     Active Substance: REBAMIPIDE
     Dosage: 300 MG, DAILY
     Route: 048
     Dates: start: 20140628
  14. LOXONIN [Suspect]
     Active Substance: LOXOPROFEN SODIUM
     Indication: PAIN
     Dosage: 180 MG, DAILY
     Route: 048
     Dates: start: 20140620
  15. SENNA [Concomitant]
     Active Substance: SENNA LEAF\SENNOSIDES\SENNOSIDES A AND B
  16. HANP [Concomitant]
     Active Substance: CARPERITIDE

REACTIONS (4)
  - Interstitial lung disease [Recovered/Resolved]
  - Pain [Unknown]
  - Respiratory failure [Recovering/Resolving]
  - Condition aggravated [Unknown]

NARRATIVE: CASE EVENT DATE: 201406
